FAERS Safety Report 11158949 (Version 1)
Quarter: 2015Q2

REPORT INFORMATION
  Report Type: Spontaneous
  Country: US (occurrence: None)
  Receive Date: 20150522
  Receipt Date: 20150522
  Transmission Date: 20150821
  Serious: Yes (Hospitalization)
  Sender: FDA-Public Use
  Company Number: 1513539

PATIENT
  Age: 54 Year
  Sex: Female

DRUGS (1)
  1. FUZEON [Suspect]
     Active Substance: ENFUVIRTIDE
     Indication: HIV INFECTION
     Route: 042

REACTIONS (3)
  - Wrong technique in drug usage process [None]
  - Pneumonia [None]
  - Off label use [None]
